FAERS Safety Report 10575163 (Version 3)
Quarter: 2015Q4

REPORT INFORMATION
  Report Type: Spontaneous
  Country: CA (occurrence: CA)
  Receive Date: 20141111
  Receipt Date: 20151103
  Transmission Date: 20160304
  Serious: Yes (Hospitalization)
  Sender: FDA-Public Use
  Company Number: CA-ROCHE-1488239

PATIENT
  Age: 27 Year
  Sex: Female

DRUGS (9)
  1. UNIPHYL [Concomitant]
     Active Substance: THEOPHYLLINE ANHYDROUS
  2. DIAMOX SEQUELS [Concomitant]
     Active Substance: ACETAZOLAMIDE
  3. TECTA [Concomitant]
     Active Substance: PANTOPRAZOLE MAGNESIUM
  4. DILTIAZEM [Concomitant]
     Active Substance: DILTIAZEM
  5. XOLAIR [Suspect]
     Active Substance: OMALIZUMAB
     Indication: ASTHMA
     Route: 058
     Dates: start: 20131205
  6. ADVAIR HFA [Concomitant]
     Active Substance: FLUTICASONE PROPIONATE\SALMETEROL XINAFOATE
  7. VENTOLIN [Concomitant]
     Active Substance: ALBUTEROL SULFATE
  8. SINGULAIR [Concomitant]
     Active Substance: MONTELUKAST SODIUM
  9. CLONAZEPAM. [Concomitant]
     Active Substance: CLONAZEPAM

REACTIONS (12)
  - Sneezing [Unknown]
  - Restrictive pulmonary disease [Unknown]
  - Hypersensitivity [Unknown]
  - Lung disorder [Unknown]
  - Exposure to mould [Unknown]
  - Uterine leiomyoma [Unknown]
  - Lower respiratory tract infection [Unknown]
  - Forced expiratory volume decreased [Unknown]
  - Asthma [Unknown]
  - Middle insomnia [Unknown]
  - Nasopharyngitis [Unknown]
  - Obstructive airways disorder [Unknown]

NARRATIVE: CASE EVENT DATE: 201410
